FAERS Safety Report 8717724 (Version 2)
Quarter: 2012Q4

REPORT INFORMATION
  Report Type: 
  Country: US (occurrence: US)
  Receive Date: 20120810
  Receipt Date: 20121011
  Transmission Date: 20130627
  Serious: No
  Sender: FDA-Public Use
  Company Number: US-009507513-1208USA002259

PATIENT
  Age: 24 None
  Sex: Female
  Weight: 48.53 kg

DRUGS (1)
  1. IMPLANON [Suspect]
     Dosage: 1 DF, UNK
     Route: 059
     Dates: end: 20120803

REACTIONS (4)
  - Menstruation irregular [Recovering/Resolving]
  - Implant site fibrosis [Recovered/Resolved]
  - Device difficult to use [Recovered/Resolved]
  - Medical device complication [Unknown]
